FAERS Safety Report 5722480-1 (Version None)
Quarter: 2008Q2

REPORT INFORMATION
  Report Type: 
  Country: None (occurrence: None)
  Receive Date: 20080429
  Receipt Date: 20071105
  Transmission Date: 20081010
  Serious: No
  Sender: FDA-Public Use
  Company Number: US-ASTRAZENECA-2007UW25693

PATIENT
  Age: 58 Year
  Sex: Female

DRUGS (13)
  1. NEXIUM [Suspect]
     Indication: GASTROOESOPHAGEAL REFLUX DISEASE
     Route: 048
     Dates: start: 20070901
  2. ALBUTEROL [Concomitant]
  3. LANTUS [Concomitant]
  4. NOVOLOG [Concomitant]
  5. COZAAR [Concomitant]
  6. PAROXETINE HCL [Concomitant]
  7. ALLOPURINOL [Concomitant]
  8. EDECRIN [Concomitant]
  9. NEURONTIN [Concomitant]
  10. SINGULAIR [Concomitant]
  11. IRON [Concomitant]
  12. ADVAIR HFA [Concomitant]
  13. ATROVENT [Concomitant]
     Route: 055

REACTIONS (3)
  - BLISTER [None]
  - DRUG INEFFECTIVE [None]
  - TONGUE DISORDER [None]
